FAERS Safety Report 7716668-8 (Version None)
Quarter: 2011Q3

REPORT INFORMATION
  Report Type: 
  Country: None (occurrence: None)
  Receive Date: 20110829
  Receipt Date: 20110127
  Transmission Date: 20111222
  Serious: No
  Sender: FDA-Public Use
  Company Number: US-ASTRAZENECA-2005UW15330

PATIENT
  Age: 64 Year
  Sex: Female
  Weight: 83.5 kg

DRUGS (5)
  1. PAIN PILL [Concomitant]
  2. VITAMIN TAB [Concomitant]
  3. NORVASC [Concomitant]
  4. IRESSA [Suspect]
     Indication: LUNG NEOPLASM MALIGNANT
     Route: 048
     Dates: start: 20020101
  5. MEGESTROL ACETATE [Concomitant]

REACTIONS (13)
  - FEELING ABNORMAL [None]
  - ANAEMIA [None]
  - COUGH [None]
  - DYSPNOEA [None]
  - DISABILITY [None]
  - DIZZINESS [None]
  - HAIR GROWTH ABNORMAL [None]
  - RASH [None]
  - DIARRHOEA [None]
  - PRODUCTIVE COUGH [None]
  - PILOERECTION [None]
  - ALOPECIA [None]
  - ASTHENIA [None]
